FAERS Safety Report 5344190-5 (Version None)
Quarter: 2007Q2

REPORT INFORMATION
  Report Type: 
  Country: None (occurrence: None)
  Receive Date: 20070604
  Receipt Date: 20070524
  Transmission Date: 20071010
  Serious: Yes (Other)
  Sender: FDA-Public Use
  Company Number: FR-ROCHE-499731

PATIENT
  Sex: Female

DRUGS (3)
  1. ROACCUTANE [Suspect]
     Indication: ACNE
     Route: 048
     Dates: start: 20070101, end: 20070401
  2. ROACCUTANE [Suspect]
     Route: 048
     Dates: start: 20050101, end: 20050601
  3. YASMIN [Concomitant]
     Indication: CONTRACEPTION
     Route: 048

REACTIONS (2)
  - NO ADVERSE EFFECT [None]
  - PREGNANCY [None]
